FAERS Safety Report 5206927-5 (Version None)
Quarter: 2007Q1

REPORT INFORMATION
  Report Type: 
  Country: None (occurrence: None)
  Receive Date: 20070105
  Receipt Date: 20070105
  Transmission Date: 20070707
  Serious: Yes (Hospitalization)
  Sender: FDA-Public Use
  Company Number: None

PATIENT
  Age: 42 Year
  Sex: Female
  Weight: 45 kg

DRUGS (14)
  1. TRUVADA [Suspect]
     Indication: ACQUIRED IMMUNODEFICIENCY SYNDROME
     Dosage: 5 TABLETS DAILY
     Dates: start: 20061024, end: 20061029
  2. HEPARIN [Concomitant]
  3. CLONAZEPAM [Concomitant]
  4. ETHAMBUTOL HYDROCHLORIDE [Concomitant]
  5. AZITHROMYCIN [Concomitant]
  6. OXYCODONE HCL [Concomitant]
  7. FLUONAZOLE [Concomitant]
  8. TRIMETHOPRIM + SULFAMETHOXAZOLE [Concomitant]
  9. ATAZANAVIR [Concomitant]
  10. RITONAVIR [Concomitant]
  11. APAP TAB [Concomitant]
  12. PROMETHAZINE [Concomitant]
  13. PIP/TAZO [Concomitant]
  14. VANCOMYCIN [Concomitant]

REACTIONS (2)
  - BLOOD CREATININE INCREASED [None]
  - DRUG PRESCRIBING ERROR [None]
